FAERS Safety Report 5930697-6 (Version None)
Quarter: 2008Q4

REPORT INFORMATION
  Report Type: 
  Country: None (occurrence: None)
  Receive Date: 20081024
  Receipt Date: 20081024
  Transmission Date: 20090506
  Serious: Yes (Other)
  Sender: FDA-Public Use
  Company Number: None

PATIENT
  Age: 29 Year
  Sex: Female
  Weight: 65.7716 kg

DRUGS (1)
  1. LEVAQUIN [Suspect]
     Indication: PNEUMONIA
     Dosage: 750 MG.
     Dates: start: 20080929, end: 20081008

REACTIONS (20)
  - ANOREXIA [None]
  - ANXIETY [None]
  - DEPERSONALISATION [None]
  - DEPRESSION [None]
  - DIZZINESS [None]
  - DRUG INTOLERANCE [None]
  - DYSPNOEA [None]
  - EXERCISE TOLERANCE DECREASED [None]
  - FATIGUE [None]
  - HEART RATE IRREGULAR [None]
  - INSOMNIA [None]
  - MUSCULAR WEAKNESS [None]
  - MYALGIA [None]
  - NAUSEA [None]
  - NEUROPATHY PERIPHERAL [None]
  - PAIN [None]
  - PANIC ATTACK [None]
  - TENDON PAIN [None]
  - UNEVALUABLE EVENT [None]
  - WEIGHT DECREASED [None]
